FAERS Safety Report 7082642-0 (Version None)
Quarter: 2010Q4

REPORT INFORMATION
  Report Type: 
  Country: None (occurrence: None)
  Receive Date: 20101104
  Receipt Date: 20101027
  Transmission Date: 20110411
  Serious: Yes (Other)
  Sender: FDA-Public Use
  Company Number: US-CELGENEUS-163-21880-10101388

PATIENT
  Sex: Female

DRUGS (8)
  1. VIDAZA [Suspect]
     Route: 051
     Dates: start: 20100923, end: 20100927
  2. REVLIMID [Suspect]
     Route: 048
     Dates: start: 20100928, end: 20101002
  3. LEVOFLOXACIN [Concomitant]
     Route: 048
  4. PREDNISONE [Concomitant]
     Indication: POLYMYALGIA RHEUMATICA
     Route: 065
     Dates: start: 20030101
  5. ASPIRIN [Concomitant]
     Route: 048
  6. COREG [Concomitant]
     Route: 048
  7. NOXAFIL [Concomitant]
     Route: 048
  8. VALTREX [Concomitant]
     Route: 048

REACTIONS (1)
  - ARTHRALGIA [None]
